FAERS Safety Report 12996866 (Version 1)
Quarter: 2016Q4

REPORT INFORMATION
  Report Type: Report from Study
  Country: PL (occurrence: PL)
  Receive Date: 20161205
  Receipt Date: 20161205
  Transmission Date: 20170207
  Serious: Yes (Other)
  Sender: FDA-Public Use
  Company Number: PL-ROCHE-1862098

PATIENT
  Age: 60 Year
  Sex: Female
  Weight: 58 kg

DRUGS (4)
  1. FOLINIC ACID [Suspect]
     Active Substance: LEUCOVORIN
     Indication: COLON CANCER
     Route: 065
  2. OXALIPLATIN. [Suspect]
     Active Substance: OXALIPLATIN
     Indication: COLON CANCER
     Route: 065
     Dates: start: 201509, end: 201603
  3. FLUOROURACIL. [Suspect]
     Active Substance: FLUOROURACIL
     Indication: COLON CANCER
     Route: 065
  4. BEVACIZUMAB [Suspect]
     Active Substance: BEVACIZUMAB
     Indication: COLON CANCER
     Route: 042
     Dates: start: 201509, end: 201603

REACTIONS (2)
  - Disease progression [Not Recovered/Not Resolved]
  - Drug ineffective [Unknown]

NARRATIVE: CASE EVENT DATE: 201604
